FAERS Safety Report 8921122 (Version 1)
Quarter: 2012Q4

REPORT INFORMATION
  Report Type: Report from Study
  Country: JP (occurrence: JP)
  Receive Date: 20121121
  Receipt Date: 20121121
  Transmission Date: 20130627
  Serious: Yes (Other)
  Sender: FDA-Public Use
  Company Number: JP-VERTEX PHARMACEUTICAL INC.-AE-2012-010007

PATIENT
  Age: 57 Year
  Sex: Female

DRUGS (8)
  1. VX-950 (TELAPREVIR) [Suspect]
     Indication: HEPATITIS C
     Dosage: 1500 mg, qd
     Route: 048
     Dates: start: 20120516, end: 20120808
  2. PEGINTERFERON ALFA-2B [Suspect]
     Indication: CHRONIC HEPATITIS C
     Route: 058
     Dates: start: 20120516, end: 20120530
  3. PEGINTERFERON ALFA-2B [Suspect]
     Dosage: 0.9 ?g/kg, UNK
     Route: 058
     Dates: start: 20120606
  4. RIBAVIRIN [Suspect]
     Indication: CHRONIC HEPATITIS C
     Route: 048
     Dates: start: 20120516, end: 20120626
  5. RIBAVIRIN [Suspect]
     Dosage: 400 mg, UNK
     Route: 048
     Dates: start: 20120627
  6. LOXONIN [Concomitant]
     Dosage: 60 mg, UNK
     Route: 048
  7. ANTEBATE OINTMENT [Concomitant]
     Dosage: UNK
     Route: 061
  8. PARIET [Concomitant]
     Dosage: 10 mg, UNK
     Route: 048

REACTIONS (1)
  - Neutrophil count decreased [Recovered/Resolved]
